FAERS Safety Report 7129643-1 (Version None)
Quarter: 2010Q4

REPORT INFORMATION
  Report Type: 
  Country: None (occurrence: None)
  Receive Date: 20101130
  Receipt Date: 20101118
  Transmission Date: 20110411
  Serious: Yes (Other)
  Sender: FDA-Public Use
  Company Number: PHHY2010US79064

PATIENT
  Sex: Female
  Weight: 56 kg

DRUGS (2)
  1. EXJADE [Suspect]
     Indication: SICKLE CELL ANAEMIA
     Dosage: 1000 MG DAILY
     Route: 048
  2. EXJADE [Suspect]
     Dosage: 500 MG, QW3
     Route: 048
     Dates: start: 20080403

REACTIONS (1)
  - ANAEMIA [None]
